FAERS Safety Report 15010776 (Version 1)
Quarter: 2018Q2

REPORT INFORMATION
  Report Type: Spontaneous
  Country: US (occurrence: US)
  Receive Date: 20180529
  Receipt Date: 20180529
  Transmission Date: 20180711
  Serious: No
  Sender: FDA-Public Use
  Company Number: None

PATIENT
  Age: 37 Year
  Sex: Female
  Weight: 137.25 kg

DRUGS (3)
  1. TYLENOL [Concomitant]
     Active Substance: ACETAMINOPHEN
  2. WOMEN^S ONE A DAY MULTI VITAMIN [Concomitant]
  3. NEXPLANON [Suspect]
     Active Substance: ETONOGESTREL
     Indication: CONTRACEPTION
     Dosage: ?          QUANTITY:1 1;?
     Dates: start: 20171001, end: 20180529

REACTIONS (4)
  - Weight increased [None]
  - Alopecia [None]
  - Implant site pain [None]
  - Loss of libido [None]

NARRATIVE: CASE EVENT DATE: 20171001
